FAERS Safety Report 5316750-9 (Version None)
Quarter: 2007Q2

REPORT INFORMATION
  Report Type: 
  Country: None (occurrence: None)
  Receive Date: 20070501
  Receipt Date: 20070501
  Transmission Date: 20071010
  Serious: Yes (Hospitalization)
  Sender: FDA-Public Use
  Company Number: None

PATIENT
  Age: 81 Year
  Sex: Male
  Weight: 60.3284 kg

DRUGS (8)
  1. GLIPIZIDE [Suspect]
     Indication: HYPERGLYCAEMIA
     Dosage: 5 MG Q AM PO
     Route: 048
     Dates: start: 20070313, end: 20070405
  2. TYLENOL W/ CODEINE [Concomitant]
  3. FERROUS SULFATE TAB [Concomitant]
  4. LISINOPRIL [Concomitant]
  5. OMEPRAZOLE [Concomitant]
  6. PROPYLTHIOURACIL [Concomitant]
  7. AMPICILLIN [Concomitant]
  8. GENTAMICIN [Concomitant]

REACTIONS (1)
  - HYPOGLYCAEMIA [None]
